FAERS Safety Report 14071247 (Version 1)
Quarter: 2017Q4

REPORT INFORMATION
  Report Type: Spontaneous
  Country: US (occurrence: US)
  Receive Date: 20171010
  Receipt Date: 20171010
  Transmission Date: 20180321
  Serious: No
  Sender: FDA-Public Use
  Company Number: US-JNJFOC-20170901453

PATIENT
  Age: 66 Year
  Sex: Female

DRUGS (5)
  1. IMBRUVICA [Suspect]
     Active Substance: IBRUTINIB
     Indication: WHITE BLOOD CELL DISORDER
     Route: 048
     Dates: start: 20170504, end: 201708
  2. IMBRUVICA [Suspect]
     Active Substance: IBRUTINIB
     Indication: MARGINAL ZONE LYMPHOMA
     Route: 048
     Dates: start: 20170504, end: 201708
  3. WARFARIN [Concomitant]
     Active Substance: WARFARIN
  4. IMBRUVICA [Suspect]
     Active Substance: IBRUTINIB
     Indication: COLD TYPE HAEMOLYTIC ANAEMIA
     Route: 048
     Dates: start: 20170504, end: 201708
  5. ALLOPURINOL. [Concomitant]
     Active Substance: ALLOPURINOL

REACTIONS (3)
  - Off label use [Unknown]
  - Drug ineffective for unapproved indication [Unknown]
  - Product use in unapproved indication [Unknown]

NARRATIVE: CASE EVENT DATE: 20170504
